FAERS Safety Report 17850690 (Version 1)
Quarter: 2020Q2

REPORT INFORMATION
  Report Type: Spontaneous
  Country: US (occurrence: US)
  Receive Date: 20200602
  Receipt Date: 20200602
  Transmission Date: 20200714
  Serious: Yes (Other)
  Sender: FDA-Public Use
  Company Number: None

PATIENT
  Age: 29 Year
  Sex: Female
  Weight: 49.5 kg

DRUGS (1)
  1. BACTRIM DS [Suspect]
     Active Substance: SULFAMETHOXAZOLE\TRIMETHOPRIM
     Indication: INFECTION PROPHYLAXIS
     Dosage: ?          QUANTITY:20 TABLET(S);?
     Route: 048
     Dates: start: 20200518, end: 20200521

REACTIONS (8)
  - Headache [None]
  - Dyspnoea [None]
  - COVID-19 [None]
  - Rash [None]
  - Anxiety [None]
  - Meningitis [None]
  - Adverse drug reaction [None]
  - Night sweats [None]

NARRATIVE: CASE EVENT DATE: 20200518
